FAERS Safety Report 24188811 (Version 1)
Quarter: 2024Q3

REPORT INFORMATION
  Report Type: Spontaneous
  Country: US (occurrence: US)
  Receive Date: 20240808
  Receipt Date: 20240808
  Transmission Date: 20241016
  Serious: No
  Sender: OTSUKA
  Company Number: US-OTSUKA-2024_000216

PATIENT
  Sex: Female

DRUGS (1)
  1. ABILIFY MAINTENA [Suspect]
     Active Substance: ARIPIPRAZOLE
     Indication: Product used for unknown indication
     Dosage: 300 MG, QM
     Route: 065
     Dates: end: 20231206

REACTIONS (4)
  - Musculoskeletal stiffness [Unknown]
  - Muscle rigidity [Unknown]
  - Tremor [Unknown]
  - Underdose [Unknown]
